FAERS Safety Report 5484512-8 (Version None)
Quarter: 2007Q4

REPORT INFORMATION
  Report Type: 
  Country: None (occurrence: None)
  Receive Date: 20071012
  Receipt Date: 20071001
  Transmission Date: 20080405
  Serious: Yes (Other)
  Sender: FDA-Public Use
  Company Number: JP-PFIZER INC-2007080018

PATIENT
  Age: 36 Year
  Sex: Female

DRUGS (8)
  1. GENOTROPIN [Suspect]
     Indication: GROWTH HORMONE DEFICIENCY
     Dosage: TEXT:0.1 TO 0.2 MG-FREQ:DAILY
     Route: 058
  2. CORTRIL [Concomitant]
     Route: 048
  3. ALFACALCIDOL [Concomitant]
     Route: 048
  4. GLAKAY [Concomitant]
     Route: 048
  5. CALCIUM LACTATE [Concomitant]
     Route: 048
  6. LIPITOR [Concomitant]
     Route: 048
  7. PAXIL [Concomitant]
  8. MEILAX [Concomitant]

REACTIONS (2)
  - DEPRESSION [None]
  - MENTAL DISORDER [None]
